FAERS Safety Report 12471784 (Version 1)
Quarter: 2016Q2

REPORT INFORMATION
  Report Type: Spontaneous
  Country: US (occurrence: None)
  Receive Date: 20160615
  Receipt Date: 20160615
  Transmission Date: 20160815
  Serious: Yes (Life-Threatening, Hospitalization)
  Sender: FDA-Public Use
  Company Number: None

PATIENT
  Age: 77 Year
  Sex: Female

DRUGS (9)
  1. COUMADIN [Suspect]
     Active Substance: WARFARIN SODIUM
     Indication: DEEP VEIN THROMBOSIS
     Dosage: 5MG TTHSAT AT BED TIME PO? CHRONIC
     Route: 048
  2. ROCATROL [Concomitant]
  3. DEMADEX [Concomitant]
     Active Substance: TORSEMIDE
  4. NEURONTIN [Concomitant]
     Active Substance: GABAPENTIN
  5. APRESOLINE HYDROCHLORIDE [Concomitant]
     Active Substance: HYDRALAZINE HYDROCHLORIDE
  6. COREG [Concomitant]
     Active Substance: CARVEDILOL
  7. ZOCOR [Concomitant]
     Active Substance: SIMVASTATIN
  8. COUMADIN [Suspect]
     Active Substance: WARFARIN SODIUM
     Indication: DEEP VEIN THROMBOSIS
     Dosage: 6MG MWFSUN AT BEDTIME PO?CHRONIC
     Route: 048
  9. ALLOPURINOL. [Concomitant]
     Active Substance: ALLOPURINOL

REACTIONS (2)
  - Cerebral haemorrhage [None]
  - Hemiparesis [None]

NARRATIVE: CASE EVENT DATE: 20160101
